FAERS Safety Report 15814039 (Version 1)
Quarter: 2019Q1

REPORT INFORMATION
  Report Type: Spontaneous
  Country: DE (occurrence: DE)
  Receive Date: 20190111
  Receipt Date: 20190111
  Transmission Date: 20190417
  Serious: Yes (Other)
  Sender: FDA-Public Use
  Company Number: DE-GILEAD-2019-0384494

PATIENT
  Sex: Female
  Weight: 65 kg

DRUGS (1)
  1. RANOLAZINE. [Suspect]
     Active Substance: RANOLAZINE
     Indication: PRODUCT USED FOR UNKNOWN INDICATION
     Dosage: 375 MG, BID
     Route: 048
     Dates: start: 20181204

REACTIONS (5)
  - Diabetes mellitus [Unknown]
  - Pancreatitis [Unknown]
  - Palpitations [Unknown]
  - Respiratory disorder [Unknown]
  - Asthma [Unknown]

NARRATIVE: CASE EVENT DATE: 20181220
